FAERS Safety Report 11555608 (Version 1)
Quarter: 2015Q3

REPORT INFORMATION
  Report Type: Spontaneous
  Country: CZ (occurrence: CZ)
  Receive Date: 20150925
  Receipt Date: 20150925
  Transmission Date: 20151125
  Serious: Yes (Other)
  Sender: FDA-Public Use
  Company Number: CZ-AMGEN-CZESP2015098796

PATIENT
  Age: 85 Year
  Sex: Female
  Weight: 53 kg

DRUGS (7)
  1. PROLIA [Suspect]
     Active Substance: DENOSUMAB
     Indication: OSTEOPOROSIS POSTMENOPAUSAL
     Dosage: UNK
     Route: 058
     Dates: start: 20120425, end: 20150413
  2. PRESTARIUM NEO [Concomitant]
     Indication: HYPERTENSION
     Dosage: ONE TABLET ,QD
     Route: 048
  3. PROLIA [Suspect]
     Active Substance: DENOSUMAB
     Indication: PATHOLOGICAL FRACTURE
  4. CONCOR COR [Concomitant]
     Active Substance: BISOPROLOL FUMARATE
     Dosage: HALF TABLET
     Route: 048
  5. TRAMAL [Concomitant]
     Active Substance: TRAMADOL
     Dosage: 100 MG, UNK
     Route: 048
  6. PREDUCTAL                          /00489601/ [Concomitant]
     Route: 048
  7. ANOPYRIN [Concomitant]
     Active Substance: ASPIRIN
     Dosage: 100 MG, QD
     Route: 048

REACTIONS (1)
  - Osteonecrosis of jaw [Recovering/Resolving]

NARRATIVE: CASE EVENT DATE: 201506
